FAERS Safety Report 23826958 (Version 1)
Quarter: 2024Q2

REPORT INFORMATION
  Report Type: Spontaneous
  Country: US (occurrence: US)
  Receive Date: 20240507
  Receipt Date: 20240507
  Transmission Date: 20240715
  Serious: Yes (unspecified)
  Sender: FDA-Public Use
  Company Number: US-B.Braun Medical Inc.-2156653

PATIENT
  Age: 61 Year
  Sex: Female

DRUGS (3)
  1. CEFOXITIN AND DEXTROSE [Suspect]
     Active Substance: CEFOXITIN SODIUM
     Indication: Pneumonia
  2. AMIKACIN SULFATE [Suspect]
     Active Substance: AMIKACIN SULFATE
  3. OMADACYCLINE [Suspect]
     Active Substance: OMADACYCLINE

REACTIONS (2)
  - Hypersensitivity [Unknown]
  - Off label use [Unknown]
